FAERS Safety Report 6050306-8 (Version None)
Quarter: 2009Q1

REPORT INFORMATION
  Report Type: 
  Country: None (occurrence: None)
  Receive Date: 20090126
  Receipt Date: 20090112
  Transmission Date: 20090719
  Serious: Yes (Death)
  Sender: FDA-Public Use
  Company Number: US-ROCHE-607767

PATIENT
  Age: 41 Year
  Sex: Female

DRUGS (4)
  1. CLONAZEPAM [Suspect]
     Indication: DRUG USE FOR UNKNOWN INDICATION
     Dosage: ROUTE: INGESTION. OVERDOSE
     Route: 048
  2. CLONAZEPAM [Suspect]
     Route: 048
  3. COCAINE [Suspect]
     Indication: DRUG USE FOR UNKNOWN INDICATION
     Dosage: ROUTE: INGESTION.
     Route: 048
  4. METHADONE HCL [Suspect]
     Indication: DRUG USE FOR UNKNOWN INDICATION
     Dosage: ROUTE: INGESTION.
     Route: 048

REACTIONS (2)
  - COMPLETED SUICIDE [None]
  - DRUG TOXICITY [None]
